FAERS Safety Report 5705452-2 (Version None)
Quarter: 2008Q2

REPORT INFORMATION
  Report Type: 
  Country: None (occurrence: None)
  Receive Date: 20080410
  Receipt Date: 20080402
  Transmission Date: 20081010
  Serious: Yes (Hospitalization, Other)
  Sender: FDA-Public Use
  Company Number: 100#08#2008-01818

PATIENT
  Age: 48 Year
  Sex: Male

DRUGS (3)
  1. CARBAMAZEPINE (CARBAMAZEPINE) [Suspect]
     Indication: DRUG USE FOR UNKNOWN INDICATION
  2. PARACETAMOL (TABLETS) (PARACETAMOL) [Suspect]
     Indication: DRUG USE FOR UNKNOWN INDICATION
  3. VALPROIC ACID [Concomitant]

REACTIONS (1)
  - DRUG RASH WITH EOSINOPHILIA AND SYSTEMIC SYMPTOMS [None]
